FAERS Safety Report 15553739 (Version 2)
Quarter: 2019Q1

REPORT INFORMATION
  Report Type: Spontaneous
  Country: US (occurrence: US)
  Receive Date: 20181026
  Receipt Date: 20190212
  Transmission Date: 20190417
  Serious: Yes (Other)
  Sender: FDA-Public Use
  Company Number: US-SA-2018SA165327

PATIENT
  Age: 47 Year
  Sex: Female
  Weight: 113 kg

DRUGS (18)
  1. IBUPROFEN. [Concomitant]
     Active Substance: IBUPROFEN
     Dosage: UNK, UNK
     Route: 065
     Dates: start: 20050101
  2. ALBUTEROL [SALBUTAMOL] [Concomitant]
     Active Substance: ALBUTEROL
     Dosage: UNK, UNK
     Route: 065
     Dates: start: 20050101
  3. BUDESONIDE. [Concomitant]
     Active Substance: BUDESONIDE
     Dosage: UNK, UNK
     Route: 065
     Dates: start: 20050101
  4. TORSEMIDE. [Concomitant]
     Active Substance: TORSEMIDE
     Dosage: UNK, UNK
     Route: 065
     Dates: start: 20050101
  5. XANAX [Concomitant]
     Active Substance: ALPRAZOLAM
     Dosage: UNK, UNK
     Route: 065
     Dates: start: 20050101
  6. TRASTUZUMAB. [Concomitant]
     Active Substance: TRASTUZUMAB
     Dosage: UNK, UNK
     Route: 065
  7. ATENOLOL. [Concomitant]
     Active Substance: ATENOLOL
     Dosage: UNK, UNK
     Route: 042
     Dates: start: 20050101
  8. CLARITIN ALLERGIC [Concomitant]
     Dosage: UNK, UNK
     Route: 065
     Dates: start: 20050101
  9. NORCO [Concomitant]
     Active Substance: ACETAMINOPHEN\HYDROCODONE BITARTRATE
     Dosage: UNK, UNK
     Route: 065
     Dates: start: 20050101
  10. ONDANSETRON [Concomitant]
     Active Substance: ONDANSETRON
     Dosage: UNK, UNK
     Route: 065
  11. TYLENOL [Concomitant]
     Active Substance: ACETAMINOPHEN
     Dosage: UNK UNK, UNK
     Route: 065
  12. CARBOPLATIN. [Concomitant]
     Active Substance: CARBOPLATIN
     Indication: CHEMOTHERAPY
     Dosage: UNK UNK, UNK
     Route: 065
  13. TAXOTERE [Suspect]
     Active Substance: DOCETAXEL
     Indication: BREAST CANCER FEMALE
     Dosage: 150 MG, Q3W
     Route: 042
     Dates: start: 20130318, end: 20130318
  14. TAXOTERE [Suspect]
     Active Substance: DOCETAXEL
     Dosage: 150 MG, Q3W
     Route: 042
     Dates: start: 20130702, end: 20130702
  15. ROBITUSSIN 12 HOUR COUGH RELIEF [Concomitant]
     Active Substance: DEXTROMETHORPHAN HYDROBROMIDE
     Dosage: UNK, UNK
     Route: 065
     Dates: start: 20050101
  16. COMPAZINE [Concomitant]
     Active Substance: PROCHLORPERAZINE MALEATE
     Dosage: UNK, UNK
     Route: 065
     Dates: start: 20050101
  17. VITAMIN D [Concomitant]
     Active Substance: CHOLECALCIFEROL
     Dosage: UNK, UNK
     Route: 065
     Dates: start: 20050101
  18. LEVOTHYROXINE. [Concomitant]
     Active Substance: LEVOTHYROXINE
     Dosage: UNK, UNK
     Route: 065
     Dates: start: 20050101

REACTIONS (1)
  - Alopecia [Recovering/Resolving]

NARRATIVE: CASE EVENT DATE: 20130501
